FAERS Safety Report 17892196 (Version 1)
Quarter: 2020Q2

REPORT INFORMATION
  Report Type: Other
  Country: US (occurrence: US)
  Receive Date: 20200612
  Receipt Date: 20200612
  Transmission Date: 20200714
  Serious: Yes (Other)
  Sender: FDA-Public Use
  Company Number: US-STANDARD HOMEOPATHIC COMPANY-2085734

PATIENT
  Sex: Male

DRUGS (4)
  1. BIOPLASMA [Suspect]
     Active Substance: HOMEOPATHICS
     Indication: NASOPHARYNGITIS
     Route: 048
     Dates: start: 20191101, end: 20200529
  2. BIOPLASMA [Suspect]
     Active Substance: HOMEOPATHICS
     Indication: HEADACHE
     Route: 048
     Dates: start: 20191101, end: 20200529
  3. BIOPLASMA [Suspect]
     Active Substance: HOMEOPATHICS
     Indication: TENSION
     Route: 048
     Dates: start: 20191101, end: 20200529
  4. BIOPLASMA [Suspect]
     Active Substance: HOMEOPATHICS
     Indication: FATIGUE
     Route: 048
     Dates: start: 20191101, end: 20200529

REACTIONS (1)
  - Partial seizures [Unknown]

NARRATIVE: CASE EVENT DATE: 20200529
